FAERS Safety Report 7067519-9 (Version None)
Quarter: 2010Q4

REPORT INFORMATION
  Report Type: 
  Country: None (occurrence: None)
  Receive Date: 20101028
  Receipt Date: 20101019
  Transmission Date: 20110411
  Serious: Yes (Other)
  Sender: FDA-Public Use
  Company Number: US-JNJFOC-20101006200

PATIENT
  Sex: Male
  Weight: 54.43 kg

DRUGS (2)
  1. CONCERTA [Suspect]
     Indication: ATTENTION DEFICIT/HYPERACTIVITY DISORDER
     Route: 048
  2. CONCERTA [Suspect]
     Route: 048

REACTIONS (7)
  - ANGINA PECTORIS [None]
  - CHEST PAIN [None]
  - EATING DISORDER [None]
  - HALLUCINATION, VISUAL [None]
  - HEADACHE [None]
  - INSOMNIA [None]
  - PARANOIA [None]
